FAERS Safety Report 12578613 (Version 1)
Quarter: 2016Q3

REPORT INFORMATION
  Report Type: Spontaneous
  Country: CO (occurrence: CO)
  Receive Date: 20160721
  Receipt Date: 20160721
  Transmission Date: 20161109
  Serious: Yes (Other)
  Sender: FDA-Public Use
  Company Number: CO-PFIZER INC-2016339652

PATIENT
  Age: 49 Year
  Sex: Male

DRUGS (1)
  1. INLYTA [Suspect]
     Active Substance: AXITINIB
     Indication: RENAL CANCER
     Dosage: 5 MG, CYCLIC

REACTIONS (3)
  - Pancreatitis [Unknown]
  - Ejection fraction decreased [Unknown]
  - Thyroiditis [Unknown]
